FAERS Safety Report 8410568-6 (Version None)
Quarter: 2012Q2

REPORT INFORMATION
  Report Type: 
  Country: None (occurrence: None)
  Receive Date: 20120605
  Receipt Date: 20120604
  Transmission Date: 20120825
  Serious: Yes (Hospitalization)
  Sender: FDA-Public Use
  Company Number: US-BAYER-2011-029624

PATIENT
  Age: 58 Year
  Weight: 95.238 kg

DRUGS (6)
  1. MAGNEVIST [Suspect]
     Indication: NUCLEAR MAGNETIC RESONANCE IMAGING BREAST
     Dosage: 19 ML, ONCE AT RATE OF 19 ML /10 SEC
     Route: 042
     Dates: start: 20110216, end: 20110216
  2. LISINOPRIL [Concomitant]
  3. EVISTA [Concomitant]
  4. SPIRONEACTIVE [Concomitant]
  5. XANAX [Concomitant]
  6. LIPITOR [Concomitant]

REACTIONS (7)
  - THROMBOPHLEBITIS SUPERFICIAL [None]
  - OEDEMA PERIPHERAL [None]
  - INDURATION [None]
  - INJECTION SITE PAIN [None]
  - PAIN IN EXTREMITY [None]
  - ERYTHEMA [None]
  - ARTHRALGIA [None]
